FAERS Safety Report 8339355-4 (Version None)
Quarter: 2012Q2

REPORT INFORMATION
  Report Type: 
  Country: None (occurrence: None)
  Receive Date: 20120507
  Receipt Date: 20120502
  Transmission Date: 20120825
  Serious: No
  Sender: FDA-Public Use
  Company Number: US-PFIZER INC-2012109774

PATIENT
  Sex: Female
  Weight: 63.492 kg

DRUGS (1)
  1. LYRICA [Suspect]
     Dosage: 25MG 3-4 TIMES DAILY AND 100MG AT NIGHT
     Dates: end: 20090409

REACTIONS (2)
  - SEDATION [None]
  - DRUG INEFFECTIVE [None]
